FAERS Safety Report 4772696-6 (Version None)
Quarter: 2005Q3

REPORT INFORMATION
  Report Type: 
  Country: None (occurrence: None)
  Receive Date: 20050919
  Receipt Date: 20050913
  Transmission Date: 20060218
  Serious: Yes (Other)
  Sender: FDA-Public Use
  Company Number: 200518066GDDC

PATIENT
  Age: 32 Year
  Sex: Male

DRUGS (4)
  1. LANTUS [Suspect]
     Indication: DIABETES MELLITUS
     Route: 058
     Dates: start: 20050901, end: 20050901
  2. HUMALOG [Concomitant]
     Route: 058
     Dates: start: 20050901
  3. HUMULIN S [Concomitant]
     Route: 058
     Dates: start: 19840101, end: 20050831
  4. IMODIUM [Concomitant]
     Indication: DIARRHOEA
     Route: 048
     Dates: start: 20050831

REACTIONS (3)
  - DYSPNOEA [None]
  - HYPERTENSION [None]
  - THROAT IRRITATION [None]
